FAERS Safety Report 9088963 (Version 1)
Quarter: 2013Q1

REPORT INFORMATION
  Report Type: Spontaneous
  Country: US (occurrence: US)
  Receive Date: 20130201
  Receipt Date: 20130201
  Transmission Date: 20140127
  Serious: No
  Sender: FDA-Public Use
  Company Number: US-PFIZER INC-2013017093

PATIENT
  Age: 30 Year
  Sex: Female
  Weight: 58.96 kg

DRUGS (3)
  1. ZOLOFT [Suspect]
     Indication: ANXIETY DISORDER
     Dosage: 25 MG, DAILY
     Dates: start: 201301
  2. ZOLOFT [Suspect]
     Indication: DEPRESSION
  3. ZOLOFT [Suspect]
     Indication: PANIC ATTACK

REACTIONS (2)
  - Dizziness [Not Recovered/Not Resolved]
  - Asthenia [Not Recovered/Not Resolved]
